FAERS Safety Report 18063719 (Version 2)
Quarter: 2020Q3

REPORT INFORMATION
  Report Type: Spontaneous
  Country: US (occurrence: US)
  Receive Date: 20200723
  Receipt Date: 20200827
  Transmission Date: 20201103
  Serious: No
  Sender: FDA-Public Use
  Company Number: US-AMGEN-USASP2020114789

PATIENT
  Age: 69 Year
  Sex: Female

DRUGS (1)
  1. REPATHA [Suspect]
     Active Substance: EVOLOCUMAB
     Indication: PRODUCT USED FOR UNKNOWN INDICATION
     Dosage: 140 MILLIGRAM, Q2WK
     Route: 065

REACTIONS (7)
  - Device use error [Unknown]
  - Incorrect disposal of product [Unknown]
  - Injection site haemorrhage [Unknown]
  - Vomiting [Unknown]
  - Nausea [Unknown]
  - Injury associated with device [Unknown]
  - Dizziness [Unknown]

NARRATIVE: CASE EVENT DATE: 202007
